FAERS Safety Report 8478499-3 (Version None)
Quarter: 2012Q2

REPORT INFORMATION
  Report Type: 
  Country: None (occurrence: None)
  Receive Date: 20120629
  Receipt Date: 20120620
  Transmission Date: 20120825
  Serious: Yes (Hospitalization, Other)
  Sender: FDA-Public Use
  Company Number: US-ASTELLAS-2012US004708

PATIENT
  Sex: Female
  Weight: 59 kg

DRUGS (3)
  1. ERLOTINIB HYDROCHLORIDE [Suspect]
     Indication: NON-SMALL CELL LUNG CANCER
     Dosage: 150 MG, UID/QD
     Route: 048
     Dates: start: 20111123
  2. XGEVA [Concomitant]
     Indication: PRODUCT USED FOR UNKNOWN INDICATION
     Dosage: Q4 MONTHS
     Route: 065
     Dates: start: 20111123
  3. COUMADIN [Concomitant]
     Indication: PRODUCT USED FOR UNKNOWN INDICATION
     Dosage: UNK
     Route: 048

REACTIONS (6)
  - DIZZINESS [None]
  - VOMITING [None]
  - GAIT DISTURBANCE [None]
  - HAEMATEMESIS [None]
  - HAEMOPTYSIS [None]
  - METASTASES TO CENTRAL NERVOUS SYSTEM [None]
